FAERS Safety Report 22310034 (Version 2)
Quarter: 2023Q2

REPORT INFORMATION
  Report Type: Spontaneous
  Country: US (occurrence: US)
  Receive Date: 20230511
  Receipt Date: 20230629
  Transmission Date: 20230722
  Serious: Yes (Hospitalization, Other)
  Sender: FDA-Public Use
  Company Number: US-RADIUS HEALTH, INC.-2023US002183

PATIENT
  Age: 48 Year
  Sex: Female

DRUGS (4)
  1. TYMLOS [Suspect]
     Active Substance: ABALOPARATIDE
     Indication: Senile osteoporosis
     Dosage: 80 MCG, DAILY
     Route: 058
     Dates: end: 20230609
  2. KETAMINE [Concomitant]
     Active Substance: KETAMINE
     Indication: Pain
  3. MORPHINE [Concomitant]
     Active Substance: MORPHINE
     Indication: Pain
  4. CORTICOSTEROID NOS [Concomitant]
     Active Substance: CORTICOSTEROID NOS
     Indication: Addison^s disease

REACTIONS (7)
  - Sepsis [Recovering/Resolving]
  - Hypertension [Not Recovered/Not Resolved]
  - Weight decreased [Unknown]
  - Abdominal discomfort [Recovering/Resolving]
  - Product dose omission issue [Unknown]
  - Nausea [Recovered/Resolved]
  - Vomiting [Not Recovered/Not Resolved]

NARRATIVE: CASE EVENT DATE: 20230501
